FAERS Safety Report 24885473 (Version 1)
Quarter: 2025Q1

REPORT INFORMATION
  Report Type: Spontaneous
  Country: US (occurrence: US)
  Receive Date: 20250124
  Receipt Date: 20250124
  Transmission Date: 20250409
  Serious: No
  Sender: BIOMARIN
  Company Number: US-SANOFI-02372539

PATIENT

DRUGS (1)
  1. ALDURAZYME [Suspect]
     Active Substance: LARONIDASE
     Indication: Product used for unknown indication
     Dosage: 8.7 MG, QW (0.54 MG/KG) (NOT YET STARTED)
     Route: 065

REACTIONS (1)
  - Off label use [Unknown]
